FAERS Safety Report 19968188 (Version 1)
Quarter: 2021Q4

REPORT INFORMATION
  Report Type: Spontaneous
  Country: US (occurrence: US)
  Receive Date: 20211015
  Receipt Date: 20211015
  Transmission Date: 20220303
  Serious: Yes (Hospitalization)
  Sender: FDA-Public Use
  Company Number: None

PATIENT
  Sex: Male

DRUGS (1)
  1. ADAKVEO [Suspect]
     Active Substance: CRIZANLIZUMAB-TMCA
     Indication: Sickle cell disease
     Dosage: ?          OTHER FREQUENCY:EVERY 28 DAYS;
     Route: 042
     Dates: start: 20200804

REACTIONS (2)
  - Weight increased [None]
  - Venoocclusive disease [None]
